FAERS Safety Report 16516687 (Version 1)
Quarter: 2019Q3

REPORT INFORMATION
  Report Type: Spontaneous
  Country: US (occurrence: US)
  Receive Date: 20190702
  Receipt Date: 20190702
  Transmission Date: 20191004
  Serious: Yes (Hospitalization, Other)
  Sender: FDA-Public Use
  Company Number: US-MYLANLABS-2019M1061047

PATIENT
  Age: 25 Year
  Sex: Female

DRUGS (11)
  1. SILDENAFIL. [Concomitant]
     Active Substance: SILDENAFIL
     Indication: VENTRICULAR TACHYCARDIA
  2. SILDENAFIL. [Concomitant]
     Active Substance: SILDENAFIL
     Indication: RIGHT VENTRICULAR DYSFUNCTION
     Route: 065
  3. AMIODARONE [Concomitant]
     Active Substance: AMIODARONE
     Indication: RIGHT VENTRICULAR DYSFUNCTION
     Route: 065
  4. AMIODARONE [Concomitant]
     Active Substance: AMIODARONE
     Indication: VENTRICULAR TACHYCARDIA
  5. MILRINONE [Concomitant]
     Active Substance: MILRINONE
     Indication: RIGHT VENTRICULAR DYSFUNCTION
     Route: 065
  6. CLOPIDOGREL [Suspect]
     Active Substance: CLOPIDOGREL BISULFATE
     Indication: DEVICE RELATED THROMBOSIS
     Dosage: 75 MILLIGRAM, QD
     Route: 065
  7. EPTIFIBATIDE. [Concomitant]
     Active Substance: EPTIFIBATIDE
     Indication: ANTICOAGULANT THERAPY
     Route: 065
  8. MILRINONE [Concomitant]
     Active Substance: MILRINONE
     Indication: VENTRICULAR TACHYCARDIA
  9. WARFARIN [Suspect]
     Active Substance: WARFARIN
     Indication: ANTICOAGULANT THERAPY
     Dosage: UNK
     Route: 065
  10. PRASUGREL. [Suspect]
     Active Substance: PRASUGREL
     Indication: DEVICE RELATED THROMBOSIS
     Dosage: 10 MILLIGRAM, QD
     Route: 065
  11. ASPIRIN                            /00002701/ [Suspect]
     Active Substance: ASPIRIN
     Indication: ANTIPLATELET THERAPY
     Dosage: UNK
     Route: 065

REACTIONS (4)
  - Mediastinal haematoma [Recovered/Resolved]
  - Anticoagulation drug level above therapeutic [Recovered/Resolved]
  - Intra-abdominal haematoma [Recovered/Resolved]
  - Drug ineffective [Unknown]
